FAERS Safety Report 6848874-9 (Version None)
Quarter: 2010Q3

REPORT INFORMATION
  Report Type: 
  Country: None (occurrence: None)
  Receive Date: 20100716
  Receipt Date: 20071015
  Transmission Date: 20110219
  Serious: No
  Sender: FDA-Public Use
  Company Number: US-PFIZER INC-2007075099

PATIENT
  Sex: Male
  Weight: 77.7 kg

DRUGS (8)
  1. CHANTIX [Suspect]
     Indication: SMOKING CESSATION THERAPY
     Route: 048
     Dates: start: 20070812
  2. ANTIHYPERTENSIVES [Concomitant]
  3. FOLIC ACID [Concomitant]
  4. TAMSULOSIN HYDROCHLORIDE [Concomitant]
  5. ALL OTHER THERAPEUTIC PRODUCTS [Concomitant]
  6. ACETYLSALICYLIC ACID [Concomitant]
  7. MULTI-VITAMINS [Concomitant]
  8. FISH OIL [Concomitant]

REACTIONS (3)
  - FATIGUE [None]
  - NAUSEA [None]
  - VOMITING [None]
